FAERS Safety Report 19210550 (Version 1)
Quarter: 2021Q2

REPORT INFORMATION
  Report Type: Spontaneous
  Country: US (occurrence: US)
  Receive Date: 20210503
  Receipt Date: 20210503
  Transmission Date: 20210717
  Serious: Yes (Hospitalization)
  Sender: FDA-Public Use
  Company Number: None

PATIENT
  Sex: Male

DRUGS (21)
  1. ROSUVASTATIN. [Concomitant]
     Active Substance: ROSUVASTATIN
  2. METOPROLOL. [Concomitant]
     Active Substance: METOPROLOL
  3. TRIHEXYPHENIDYL [Concomitant]
     Active Substance: TRIHEXYPHENIDYL
  4. ZYPREXA [Concomitant]
     Active Substance: OLANZAPINE
  5. KLONOPIN [Concomitant]
     Active Substance: CLONAZEPAM
  6. TUMERIC [Concomitant]
     Active Substance: HERBALS\TURMERIC
  7. ASPIRIN. [Concomitant]
     Active Substance: ASPIRIN
  8. COGENTIN [Concomitant]
     Active Substance: BENZTROPINE MESYLATE
  9. GLYCOPYRROLATE. [Concomitant]
     Active Substance: GLYCOPYRROLATE
  10. ABILIF [Concomitant]
  11. PROBIOTIC [Concomitant]
     Active Substance: PROBIOTICS NOS
  12. FLUOXETINE [Concomitant]
     Active Substance: FLUOXETINE HYDROCHLORIDE
  13. MAGNESIUM  GLUCONATE [Concomitant]
     Active Substance: MAGNESIUM GLUCONATE
  14. LAMOTRIGINE. [Concomitant]
     Active Substance: LAMOTRIGINE
  15. METAMUCIL [Concomitant]
     Active Substance: PLANTAGO SEED
  16. OLANZAPINE. [Concomitant]
     Active Substance: OLANZAPINE
  17. MIRALAX [Concomitant]
     Active Substance: POLYETHYLENE GLYCOL 3350
  18. BENZTROPINE MESYLATE. [Concomitant]
     Active Substance: BENZTROPINE MESYLATE
  19. FAMOTIDINE. [Concomitant]
     Active Substance: FAMOTIDINE
  20. SPRYCEL [Suspect]
     Active Substance: DASATINIB
     Indication: CHRONIC MYELOID LEUKAEMIA
     Route: 048
     Dates: start: 20180707
  21. DONEPEZIL. [Concomitant]
     Active Substance: DONEPEZIL

REACTIONS (1)
  - Depression [None]
